FAERS Safety Report 8890858 (Version 1)
Quarter: 2012Q4

REPORT INFORMATION
  Report Type: 
  Country: DE (occurrence: DE)
  Receive Date: 20121107
  Receipt Date: 20121107
  Transmission Date: 20130627
  Serious: Yes (Death)
  Sender: FDA-Public Use
  Company Number: DE-CELGENEUS-062-21880-12110207

PATIENT
  Age: 13 Year
  Sex: Female

DRUGS (1)
  1. REVLIMID [Suspect]
     Indication: MDS
     Route: 048

REACTIONS (1)
  - Death [Fatal]
